FAERS Safety Report 7878738-3 (Version None)
Quarter: 2011Q4

REPORT INFORMATION
  Report Type: 
  Country: None (occurrence: None)
  Receive Date: 20111101
  Receipt Date: 20111025
  Transmission Date: 20120403
  Serious: Yes (Life-Threatening, Hospitalization)
  Sender: FDA-Public Use
  Company Number: JP-ASTRAZENECA-2011SE23147

PATIENT
  Age: 24116 Day
  Sex: Male

DRUGS (41)
  1. DIFLUCAN [Suspect]
     Indication: ANTIFUNGAL PROPHYLAXIS
     Route: 048
     Dates: end: 20110111
  2. PREDNISOLONE [Suspect]
     Indication: ADULT T-CELL LYMPHOMA/LEUKAEMIA
     Dosage: 10 MILLIGRAM/SQ.METER
     Dates: start: 20101118, end: 20101118
  3. ZOVIRAX [Suspect]
     Indication: PROPHYLAXIS
     Route: 048
     Dates: end: 20110128
  4. ONCOVIN [Suspect]
     Indication: ADULT T-CELL LYMPHOMA/LEUKAEMIA
     Dosage: 1 MILLIGRAM/SQ.METER
     Dates: start: 20101007, end: 20101222
  5. CYCLOPHOSPHAMIDE [Suspect]
     Indication: ADULT T-CELL LYMPHOMA/LEUKAEMIA
     Dosage: 350 MILLIGRAM/SQ.METER
     Dates: start: 20101007, end: 20101222
  6. CYMERIN [Suspect]
     Indication: ADULT T-CELL LYMPHOMA/LEUKAEMIA
     Dosage: 60 MILLIGRAM/SQ.METER
     Dates: start: 20101014, end: 20101229
  7. DOXORUBICIN HYDROCHLORIDE [Suspect]
     Indication: ADULT T-CELL LYMPHOMA/LEUKAEMIA
     Dosage: 30 MILLIGRAM/SQ.METER
     Dates: start: 20101229, end: 20101229
  8. DOXORUBICIN HYDROCHLORIDE [Suspect]
     Dosage: 40 MILLIGRAM/SQ.METER
     Dates: start: 20101116, end: 20101116
  9. TARGOCID [Concomitant]
     Dates: start: 20110506, end: 20110714
  10. ZOVIRAX [Suspect]
     Route: 048
     Dates: start: 20110712, end: 20110719
  11. LYRICA [Suspect]
     Indication: PAIN
     Route: 048
     Dates: start: 20110629, end: 20110719
  12. DOXORUBICIN HYDROCHLORIDE [Suspect]
     Dosage: 30 MILLIGRAM/SQ.METER
     Dates: start: 20101014, end: 20101014
  13. DOXORUBICIN HYDROCHLORIDE [Suspect]
     Dosage: 30 MILLIGRAM/SQ.METER
     Dates: start: 20101124, end: 20101124
  14. ALLOPURINOL [Suspect]
     Indication: PROPHYLAXIS
     Route: 048
     Dates: end: 20110120
  15. OTHER ANTITUMOR AGENTS [Suspect]
     Indication: ADULT T-CELL LYMPHOMA/LEUKAEMIA
     Dosage: 1 MILLIGRAM/KILOGRAM
     Dates: start: 20101008, end: 20101221
  16. CEFAZOLIN SODIUM [Suspect]
     Indication: PROCTITIS
     Dates: start: 20101022, end: 20110217
  17. FILDESIN [Suspect]
     Indication: ADULT T-CELL LYMPHOMA/LEUKAEMIA
     Dosage: 2.4 MILLIGRAM/SQ.METER
     Dates: start: 20101026, end: 20101208
  18. ETOPOSIDE [Suspect]
     Indication: ADULT T-CELL LYMPHOMA/LEUKAEMIA
     Dosage: 100 MILLIGRAM/SQ.METER
     Dates: start: 20101026, end: 20101208
  19. DOXORUBICIN HYDROCHLORIDE [Suspect]
     Dosage: 40 MILLIGRAM/SQ.METER
     Dates: start: 20101222, end: 20101222
  20. DOXORUBICIN HYDROCHLORIDE [Suspect]
     Dosage: 40 MILLIGRAM/SQ.METER
     Dates: start: 20101007, end: 20101007
  21. MEROPENEM [Suspect]
     Indication: PNEUMONIA
     Route: 042
     Dates: start: 20110107, end: 20110124
  22. MEROPENEM [Suspect]
     Route: 042
     Dates: start: 20110704, end: 20110715
  23. VANCOMYCIN HYCHLORIDE [Suspect]
     Indication: PNEUMONIA
     Dates: start: 20110107, end: 20110117
  24. ALLOPURINOL [Suspect]
     Route: 048
     Dates: start: 20110705, end: 20110719
  25. CARBOPLATIN [Suspect]
     Indication: ADULT T-CELL LYMPHOMA/LEUKAEMIA
     Dosage: 250 MILLIGRAM/SQ.METER
     Dates: start: 20101026, end: 20101208
  26. METHOTREXATE [Suspect]
     Indication: ADULT T-CELL LYMPHOMA/LEUKAEMIA
     Dates: start: 20101118, end: 20101118
  27. CYTARABINE [Suspect]
     Indication: ADULT T-CELL LYMPHOMA/LEUKAEMIA
     Dates: start: 20101118, end: 20101118
  28. PANTOSIN [Suspect]
     Indication: CONSTIPATION
     Route: 048
     Dates: start: 20110107, end: 20110110
  29. VFEND [Concomitant]
     Dates: start: 20110704, end: 20110718
  30. FENTANYL CITRATE [Suspect]
     Indication: STOMATITIS
     Dates: start: 20110102, end: 20110119
  31. LANSOPRAZOLE [Suspect]
     Indication: GASTROOESOPHAGEAL REFLUX DISEASE
     Route: 048
     Dates: end: 20110217
  32. LIPIDIL [Suspect]
     Indication: HYPERLIPIDAEMIA
     Route: 048
     Dates: end: 20110126
  33. PREDNISOLONE [Suspect]
     Indication: ADULT T-CELL LYMPHOMA/LEUKAEMIA
     Dosage: 40 MILLIGRAM/SQ.METER
     Dates: start: 20101007, end: 20101229
  34. MAGMITT [Suspect]
     Indication: CONSTIPATION
     Route: 048
     Dates: start: 20110107, end: 20110110
  35. BARACLUDE [Suspect]
     Indication: HEPATITIS B
     Route: 065
     Dates: start: 20110629, end: 20110719
  36. SLOW-K [Concomitant]
     Route: 048
     Dates: start: 20110630, end: 20110724
  37. CIPROFLOXACIN HCL [Concomitant]
     Dates: start: 20110715, end: 20110718
  38. AMLODIPINE [Suspect]
     Indication: HYPERTENSION
     Route: 048
     Dates: start: 20101008, end: 20110217
  39. LANSOPRAZOLE [Suspect]
     Route: 048
     Dates: start: 20110526, end: 20110719
  40. SULFAMETHOXAZOLE [Suspect]
     Indication: ANTIFUNGAL PROPHYLAXIS
     Route: 048
     Dates: end: 20110128
  41. SULFAMETHOXAZOLE [Suspect]
     Route: 048
     Dates: start: 20110715

REACTIONS (5)
  - PLATELET COUNT DECREASED [None]
  - RENAL DISORDER [None]
  - PNEUMONIA [None]
  - HERPES ZOSTER [None]
  - INTERSTITIAL LUNG DISEASE [None]
